FAERS Safety Report 24628822 (Version 2)
Quarter: 2025Q1

REPORT INFORMATION
  Report Type: Spontaneous
  Country: KR (occurrence: KR)
  Receive Date: 20241118
  Receipt Date: 20250108
  Transmission Date: 20250409
  Serious: Yes (Other)
  Sender: COLLEGIUM PHARMACEUTICAL
  Company Number: KR-JNJFOC-20241125721

PATIENT
  Sex: Female

DRUGS (2)
  1. NUCYNTA [Suspect]
     Active Substance: TAPENTADOL HYDROCHLORIDE
     Indication: Pain
     Route: 048
     Dates: start: 20220804, end: 20220809
  2. FENTANYL [Suspect]
     Active Substance: FENTANYL
     Indication: Pain
     Route: 065
     Dates: start: 20220804, end: 20220809

REACTIONS (1)
  - Delirium [Recovered/Resolved]

NARRATIVE: CASE EVENT DATE: 20220809
